FAERS Safety Report 20459654 (Version 1)
Quarter: 2022Q1

REPORT INFORMATION
  Report Type: Spontaneous
  Country: US (occurrence: US)
  Receive Date: 20220211
  Receipt Date: 20220211
  Transmission Date: 20220423
  Serious: Yes (Other)
  Sender: FDA-Public Use
  Company Number: US-VERICEL-US-VCEL-21-000025

PATIENT

DRUGS (1)
  1. MACI [Suspect]
     Active Substance: AUTOLOGOUS CULTURED CHONDROCYTES\SUS SCROFA COLLAGEN
     Indication: Cartilage injury
     Dosage: 1 DOSAGE FORM, SINGLE
     Route: 050
     Dates: start: 20180501

REACTIONS (5)
  - Graft delamination [Not Recovered/Not Resolved]
  - Treatment failure [Unknown]
  - Arthralgia [Unknown]
  - Joint lock [Unknown]
  - Arthroscopy [Unknown]

NARRATIVE: CASE EVENT DATE: 20210202
